FAERS Safety Report 9961998 (Version 1)
Quarter: 2014Q1

REPORT INFORMATION
  Report Type: Report from Study
  Country: US (occurrence: US)
  Receive Date: 20140305
  Receipt Date: 20140305
  Transmission Date: 20141002
  Serious: No
  Sender: FDA-Public Use
  Company Number: US-ABBVIE-13P-163-1114601-00

PATIENT
  Age: 52 Year
  Sex: Female

DRUGS (6)
  1. HUMIRA [Suspect]
     Indication: CROHN^S DISEASE
     Dates: start: 201304
  2. CALCIUM [Concomitant]
     Indication: VITAMIN SUPPLEMENTATION
  3. POTASSIUM [Concomitant]
     Indication: DIURETIC THERAPY
  4. TRIAMTERENE /HCTZ [Concomitant]
     Indication: FLUID RETENTION
  5. VITAMIN B 12 [Concomitant]
     Indication: VITAMIN B COMPLEX DEFICIENCY
  6. CYANOCOBALAMIN [Concomitant]
     Indication: VITAMIN B COMPLEX DEFICIENCY

REACTIONS (1)
  - Local swelling [Recovered/Resolved]
